FAERS Safety Report 18294139 (Version 1)
Quarter: 2020Q3

REPORT INFORMATION
  Report Type: Spontaneous
  Country: US (occurrence: US)
  Receive Date: 20200922
  Receipt Date: 20200922
  Transmission Date: 20201103
  Serious: No
  Sender: FDA-Public Use
  Company Number: US-LUPIN PHARMACEUTICALS INC.-2020-04288

PATIENT
  Age: 51 Year
  Sex: Female
  Weight: 72.56 kg

DRUGS (3)
  1. SOLOSEC [Suspect]
     Active Substance: SECNIDAZOLE
     Indication: BACTERIAL VAGINOSIS
     Dosage: UNK
     Route: 048
     Dates: start: 202002
  2. SOLOSEC [Suspect]
     Active Substance: SECNIDAZOLE
     Indication: URINARY TRACT INFECTION
     Dosage: 2 GRAM, SINGLE
     Route: 048
     Dates: start: 20200723, end: 20200723
  3. SOLOSEC [Suspect]
     Active Substance: SECNIDAZOLE
     Indication: VULVOVAGINITIS TRICHOMONAL

REACTIONS (2)
  - Product use in unapproved indication [Unknown]
  - Dysuria [Recovering/Resolving]

NARRATIVE: CASE EVENT DATE: 202007
